FAERS Safety Report 9800104 (Version 2)
Quarter: 2014Q1

REPORT INFORMATION
  Report Type: Spontaneous
  Country: US (occurrence: US)
  Receive Date: 20140106
  Receipt Date: 20140106
  Transmission Date: 20141002
  Serious: Yes (Other)
  Sender: FDA-Public Use
  Company Number: US-GILEAD-2010-0032532

PATIENT
  Age: 57 Year
  Sex: Female
  Weight: 104.33 kg

DRUGS (21)
  1. LETAIRIS [Suspect]
     Indication: PULMONARY ARTERIAL HYPERTENSION
     Route: 048
     Dates: start: 20100909
  2. OXYGEN [Concomitant]
  3. FUROSEMIDE [Concomitant]
  4. SPIRONOLACTONE [Concomitant]
  5. DIOVAN [Concomitant]
  6. CYMBALTA [Concomitant]
  7. CYCLOBENZAPRIN [Concomitant]
  8. ADVAIR [Concomitant]
  9. ALBUTEROL [Concomitant]
  10. FLUTICASONE [Concomitant]
  11. NASONEX [Concomitant]
  12. LORAZEPAM [Concomitant]
  13. LEVOTHYROXINE [Concomitant]
  14. RESTASIS [Concomitant]
  15. ERY-TAB [Concomitant]
  16. PRAMIPEXOLE [Concomitant]
  17. ACIPHEX [Concomitant]
  18. HYOMAX [Concomitant]
  19. PROVIGIL [Concomitant]
  20. MAGNESIUM OXIDE [Concomitant]
  21. POTASSIUM CHLORIDE [Concomitant]

REACTIONS (5)
  - Right ventricular failure [Unknown]
  - Nasopharyngitis [Unknown]
  - Productive cough [Unknown]
  - Dyspnoea [Unknown]
  - Fluid retention [Unknown]
